FAERS Safety Report 19039503 (Version 1)
Quarter: 2021Q1

REPORT INFORMATION
  Report Type: Spontaneous
  Country: US (occurrence: US)
  Receive Date: 20210322
  Receipt Date: 20210322
  Transmission Date: 20210420
  Serious: Yes (Other)
  Sender: FDA-Public Use
  Company Number: US-B.I. PHARMACEUTICALS,INC./RIDGEFIELD-2021-BI-089389

PATIENT
  Age: 25 Year
  Sex: Female

DRUGS (10)
  1. CATAPRESAN [Suspect]
     Active Substance: CLONIDINE
     Indication: PRODUCT USED FOR UNKNOWN INDICATION
  2. FERROUS SULFATE. [Concomitant]
     Active Substance: FERROUS SULFATE
     Indication: PRODUCT USED FOR UNKNOWN INDICATION
  3. CALCIUM CARBONATE. [Concomitant]
     Active Substance: CALCIUM CARBONATE
     Indication: PRODUCT USED FOR UNKNOWN INDICATION
  4. METRONIDAZOLE. [Suspect]
     Active Substance: METRONIDAZOLE
     Indication: PELVIC INFLAMMATORY DISEASE
  5. CEFTIZOXIME [Suspect]
     Active Substance: CEFTIZOXIME
     Indication: PELVIC INFLAMMATORY DISEASE
  6. PIPERACILLIN. [Suspect]
     Active Substance: PIPERACILLIN SODIUM
     Indication: PRODUCT USED FOR UNKNOWN INDICATION
  7. INSULIN [Concomitant]
     Active Substance: INSULIN NOS
     Indication: PRODUCT USED FOR UNKNOWN INDICATION
  8. NIFEDIPINE. [Suspect]
     Active Substance: NIFEDIPINE
     Indication: PRODUCT USED FOR UNKNOWN INDICATION
  9. GENTAMYCINE [GENTAMICIN SULFATE] [Suspect]
     Active Substance: GENTAMICIN SULFATE
     Indication: PRODUCT USED FOR UNKNOWN INDICATION
  10. VANCOMYCIN [Suspect]
     Active Substance: VANCOMYCIN
     Indication: INJECTION SITE INFECTION

REACTIONS (4)
  - Blood alkaline phosphatase increased [Recovering/Resolving]
  - Stevens-Johnson syndrome [Recovering/Resolving]
  - Transaminases increased [Recovering/Resolving]
  - Blood lactate dehydrogenase increased [Recovering/Resolving]
